FAERS Safety Report 4682499-9 (Version None)
Quarter: 2005Q2

REPORT INFORMATION
  Report Type: 
  Country: None (occurrence: None)
  Receive Date: 20050602
  Receipt Date: 20050602
  Transmission Date: 20051028
  Serious: No
  Sender: FDA-Public Use
  Company Number: None

PATIENT
  Age: 57 Year
  Sex: Female
  Weight: 86.1834 kg

DRUGS (2)
  1. TIZANIDINE HCL [Suspect]
     Dosage: 3 PER DAY; 1 3 TIMES PER DAY
     Dates: start: 20050524
  2. TIZANIDINE HCL [Suspect]
     Dosage: 3 PER DAY; 1 3 TIMES PER DAY
     Dates: start: 20050525

REACTIONS (5)
  - DRUG EFFECT DECREASED [None]
  - DRY MOUTH [None]
  - HEADACHE [None]
  - INSOMNIA [None]
  - PHARYNGITIS STREPTOCOCCAL [None]
